FAERS Safety Report 15191040 (Version 1)
Quarter: 2018Q3

REPORT INFORMATION
  Report Type: Other
  Country: US (occurrence: US)
  Receive Date: 20180724
  Receipt Date: 20180724
  Transmission Date: 20181010
  Serious: Yes (Hospitalization)
  Sender: FDA-Public Use
  Company Number: US-BIO-PHARM, INC -2052672

PATIENT
  Age: 62 Year
  Sex: Female

DRUGS (1)
  1. RISPERIDONE. [Suspect]
     Active Substance: RISPERIDONE

REACTIONS (8)
  - Salivary hypersecretion [None]
  - Streptococcus test positive [None]
  - Pneumonia [None]
  - Catatonia [Recovered/Resolved]
  - Systemic inflammatory response syndrome [None]
  - Septic shock [None]
  - Respiratory failure [None]
  - Cough [None]
